FAERS Safety Report 4715948-8 (Version None)
Quarter: 2005Q3

REPORT INFORMATION
  Report Type: 
  Country: None (occurrence: None)
  Receive Date: 20050718
  Receipt Date: 20050325
  Transmission Date: 20060218
  Serious: Yes (Hospitalization)
  Sender: FDA-Public Use
  Company Number: US-MERCK-0503USA05003

PATIENT
  Age: 59 Year
  Sex: Female
  Weight: 72 kg

DRUGS (5)
  1. VIOXX [Suspect]
     Indication: ARTHRALGIA
     Route: 048
     Dates: start: 19991029, end: 20020604
  2. VIOXX [Suspect]
     Indication: ARTHRITIS
     Route: 048
     Dates: start: 19991029, end: 20020604
  3. SYNTHROID [Concomitant]
     Route: 065
  4. FOSAMAX [Concomitant]
     Route: 065
  5. PROVERA [Concomitant]
     Route: 065

REACTIONS (8)
  - BLOOD CHOLESTEROL INCREASED [None]
  - CEREBELLAR INFARCTION [None]
  - FALL [None]
  - FRACTURED COCCYX [None]
  - HAEMORRHOIDAL HAEMORRHAGE [None]
  - HYPERTENSION [None]
  - JOINT SWELLING [None]
  - MASS [None]
